FAERS Safety Report 21853384 (Version 1)
Quarter: 2023Q1

REPORT INFORMATION
  Report Type: Report from Study
  Country: MX (occurrence: MX)
  Receive Date: 20230112
  Receipt Date: 20230112
  Transmission Date: 20230417
  Serious: Yes (Other)
  Sender: FDA-Public Use
  Company Number: MX-BAYER-2023A002397

PATIENT
  Sex: Female

DRUGS (1)
  1. EYLEA [Suspect]
     Active Substance: AFLIBERCEPT
     Indication: Neovascular age-related macular degeneration
     Dosage: 50 MCL AFLIBERCEPT INTRAVITREAL, SOLUTION FOR INJECTION, 40 MG/ML
     Dates: start: 20210710

REACTIONS (3)
  - Blindness unilateral [Recovering/Resolving]
  - Injection site haemorrhage [Recovering/Resolving]
  - Injection site pain [Recovered/Resolved]

NARRATIVE: CASE EVENT DATE: 20221223
